FAERS Safety Report 4393203-6 (Version None)
Quarter: 2004Q3

REPORT INFORMATION
  Report Type: 
  Country: None (occurrence: None)
  Receive Date: 20040701
  Receipt Date: 20040621
  Transmission Date: 20050211
  Serious: Yes (Death)
  Sender: FDA-Public Use
  Company Number: MX-JNJFOC-20040605949

PATIENT
  Age: 65 Year
  Sex: Female
  Weight: 60 kg

DRUGS (1)
  1. INFLIXIMAB (INFLIXIMAB, RECOMBINANT) LYOPHILIZED POWDER [Suspect]
     Indication: RHEUMATOID ARTHRITIS
     Dosage: 200 MG, 3 IN, INTRAVENOUS
     Route: 042

REACTIONS (9)
  - ARTHRALGIA [None]
  - BIOPSY LUNG ABNORMAL [None]
  - COUGH [None]
  - CYTOMEGALOVIRUS INFECTION [None]
  - LUNG INFILTRATION [None]
  - MYCOBACTERIA TISSUE SPECIMEN TEST POSITIVE [None]
  - PYREXIA [None]
  - SEPSIS [None]
  - WHITE BLOOD CELL COUNT INCREASED [None]
